FAERS Safety Report 14851142 (Version 6)
Quarter: 2018Q4

REPORT INFORMATION
  Report Type: Spontaneous
  Country: US (occurrence: US)
  Receive Date: 20180507
  Receipt Date: 20181228
  Transmission Date: 20190204
  Serious: Yes (Other)
  Sender: FDA-Public Use
  Company Number: US-B.I. PHARMACEUTICALS,INC./RIDGEFIELD-2018-BI-024242

PATIENT
  Sex: Male

DRUGS (4)
  1. ZYTIGA [Suspect]
     Active Substance: ABIRATERONE ACETATE
     Indication: PRODUCT USED FOR UNKNOWN INDICATION
     Route: 065
     Dates: start: 20181031
  2. TAMSULOSINA [Suspect]
     Active Substance: TAMSULOSIN HYDROCHLORIDE
     Indication: PRODUCT USED FOR UNKNOWN INDICATION
     Route: 065
  3. GOSERELIN [Suspect]
     Active Substance: GOSERELIN
     Indication: PRODUCT USED FOR UNKNOWN INDICATION
     Route: 065
  4. XTANDI [Suspect]
     Active Substance: ENZALUTAMIDE
     Indication: PROSTATE CANCER
     Route: 048

REACTIONS (13)
  - Pain [Unknown]
  - Rash [Unknown]
  - Myalgia [Unknown]
  - Dysuria [Unknown]
  - Pyrexia [Unknown]
  - Arthralgia [Unknown]
  - Drug effect incomplete [Unknown]
  - Cancer pain [Unknown]
  - Peripheral swelling [Unknown]
  - Drug interaction [Unknown]
  - Asthenia [Unknown]
  - Malignant neoplasm progression [Unknown]
  - Joint swelling [Unknown]
